FAERS Safety Report 12964842 (Version 1)
Quarter: 2016Q4

REPORT INFORMATION
  Report Type: Report from Study
  Country: DE (occurrence: DE)
  Receive Date: 20161122
  Receipt Date: 20161122
  Transmission Date: 20170207
  Serious: Yes (Death, Life-Threatening, Hospitalization, Other)
  Sender: FDA-Public Use
  Company Number: DE-JNJFOC-20160327180

PATIENT
  Sex: Male
  Weight: 80 kg

DRUGS (3)
  1. ACETYLSALICYLIC ACID [Concomitant]
     Active Substance: ASPIRIN
     Dosage: OM
     Route: 065
     Dates: end: 20160323
  2. XARELTO [Suspect]
     Active Substance: RIVAROXABAN
     Indication: ATRIAL FIBRILLATION
     Route: 048
     Dates: start: 20160322
  3. HEPARIN [Concomitant]
     Active Substance: HEPARIN SODIUM
     Dosage: OM
     Route: 065
     Dates: start: 20160327, end: 20160329

REACTIONS (6)
  - Brain oedema [Unknown]
  - Haemorrhage intracranial [Fatal]
  - Vomiting [Recovered/Resolved]
  - Brain herniation [Unknown]
  - Spinal cord haemorrhage [Fatal]
  - Brain midline shift [Unknown]

NARRATIVE: CASE EVENT DATE: 20160323
